FAERS Safety Report 9684050 (Version 1)
Quarter: 2013Q4

REPORT INFORMATION
  Report Type: Spontaneous
  Country: US (occurrence: None)
  Receive Date: 20131111
  Receipt Date: 20131111
  Transmission Date: 20140711
  Serious: Yes (Life-Threatening)
  Sender: FDA-Public Use
  Company Number: None

PATIENT
  Age: 58 Year
  Sex: Male
  Weight: 78.02 kg

DRUGS (1)
  1. COMBIVENT [Suspect]
     Indication: ASTHMA
     Dosage: 1  TWICE DAILY INHALATION
     Route: 055
     Dates: start: 20131024, end: 20131110

REACTIONS (2)
  - Device difficult to use [None]
  - Asthma [None]
